FAERS Safety Report 5165085-6 (Version None)
Quarter: 2006Q4

REPORT INFORMATION
  Report Type: 
  Country: None (occurrence: None)
  Receive Date: 20061124
  Receipt Date: 20061113
  Transmission Date: 20070319
  Serious: Yes (Hospitalization, Other)
  Sender: FDA-Public Use
  Company Number: 2002065311

PATIENT
  Age: 66 Year
  Sex: Female

DRUGS (6)
  1. LIPITOR [Suspect]
     Indication: DYSLIPIDAEMIA
     Dosage: 40 MG (40 MG, 1 IN 1 D), ORAL
     Route: 048
     Dates: start: 19980801
  2. ASPIRIN [Suspect]
     Indication: ILL-DEFINED DISORDER
     Dosage: ORAL
     Route: 048
     Dates: start: 19981101
  3. AMLODIPINE [Concomitant]
  4. DILTIAZEM HYDROCHLORIDE [Concomitant]
  5. PROPATYLNITRATE                   (PROPATYLNITRATE) [Concomitant]
  6. ATENOLOL [Concomitant]

REACTIONS (13)
  - ASTHENIA [None]
  - BLOOD CHOLESTEROL INCREASED [None]
  - BLOOD TRIGLYCERIDES INCREASED [None]
  - CARDIAC FAILURE [None]
  - CHEST PAIN [None]
  - CORONARY ARTERY OCCLUSION [None]
  - DIZZINESS [None]
  - GAIT DISTURBANCE [None]
  - GASTRIC DISORDER [None]
  - GROIN PAIN [None]
  - NASOPHARYNGEAL DISORDER [None]
  - PROCEDURAL PAIN [None]
  - SENSATION OF FOREIGN BODY [None]
